FAERS Safety Report 12579650 (Version 3)
Quarter: 2016Q4

REPORT INFORMATION
  Report Type: Spontaneous
  Country: AT (occurrence: AT)
  Receive Date: 20160721
  Receipt Date: 20161028
  Transmission Date: 20170207
  Serious: Yes (Hospitalization)
  Sender: FDA-Public Use
  Company Number: AT-ELI_LILLY_AND_COMPANY-AT201607005135

PATIENT
  Age: 78 Year
  Sex: Male
  Weight: 50 kg

DRUGS (4)
  1. CIALIS [Suspect]
     Active Substance: TADALAFIL
     Dosage: 2.5 MG, EVERY THREE DAYS
     Route: 065
  2. CIALIS [Suspect]
     Active Substance: TADALAFIL
     Indication: POST PROCEDURAL COMPLICATION
     Dosage: 5 MG, QD
     Route: 065
  3. CIALIS [Suspect]
     Active Substance: TADALAFIL
     Dosage: 5 MG, EVERY FIVE DAYS
     Route: 065
  4. CIALIS [Suspect]
     Active Substance: TADALAFIL
     Dosage: 5 MG, WEEKLY (1/W)
     Route: 065

REACTIONS (12)
  - Malaise [Unknown]
  - Candida infection [Unknown]
  - Blindness [Unknown]
  - Haemorrhage [Unknown]
  - Visual impairment [Recovered/Resolved]
  - Swelling face [Unknown]
  - Dizziness [Unknown]
  - Inappropriate schedule of drug administration [Unknown]
  - Gastrooesophageal reflux disease [Not Recovered/Not Resolved]
  - Headache [Unknown]
  - Hypersensitivity [Unknown]
  - Off label use [Unknown]
